FAERS Safety Report 6744013-3 (Version None)
Quarter: 2010Q2

REPORT INFORMATION
  Report Type: 
  Country: None (occurrence: None)
  Receive Date: 20100527
  Receipt Date: 20100519
  Transmission Date: 20101027
  Serious: Yes (Hospitalization)
  Sender: FDA-Public Use
  Company Number: A0785090A

PATIENT
  Age: 56 Year
  Sex: Male

DRUGS (1)
  1. AVANDIA [Suspect]
     Route: 065
     Dates: start: 20000225, end: 20060601

REACTIONS (4)
  - CHEST PAIN [None]
  - CORONARY ARTERY BYPASS [None]
  - DYSPNOEA [None]
  - MYOCARDIAL INFARCTION [None]
